FAERS Safety Report 5389094-7 (Version None)
Quarter: 2007Q3

REPORT INFORMATION
  Report Type: 
  Country: None (occurrence: None)
  Receive Date: 20070717
  Receipt Date: 20070709
  Transmission Date: 20080115
  Serious: Yes (Hospitalization)
  Sender: FDA-Public Use
  Company Number: FR-JNJFOC-20070600590

PATIENT
  Age: 40 Year
  Sex: Female

DRUGS (3)
  1. LEVOFLOXACIN [Suspect]
     Indication: SINUSITIS
     Route: 048
  2. SOLU-MEDROL [Concomitant]
     Route: 048
  3. MYOLASTAN [Concomitant]
     Route: 048

REACTIONS (5)
  - ANAESTHESIA [None]
  - HYPOAESTHESIA ORAL [None]
  - MENINGEAL DISORDER [None]
  - PARAESTHESIA [None]
  - SENSE OF OPPRESSION [None]
